FAERS Safety Report 10179291 (Version 1)
Quarter: 2014Q2

REPORT INFORMATION
  Report Type: Spontaneous
  Country: US (occurrence: None)
  Receive Date: 20140515
  Receipt Date: 20140515
  Transmission Date: 20141212
  Serious: Yes (Other)
  Sender: FDA-Public Use
  Company Number: 001727593A

PATIENT
  Age: 38 Year
  Sex: Female

DRUGS (8)
  1. PROACTIV + SKIN SMOOTHING EXFOLIATOR [Suspect]
     Indication: ACNE
     Dosage: DERMAL
     Dates: start: 20140416
  2. PROACTIV + PORE TARGETING TREATMENT [Suspect]
     Indication: ACNE
     Dosage: DERMAL
     Dates: start: 20140416, end: 20140416
  3. PROACTIV + SKIN PURIFYING MASK [Suspect]
     Indication: ACNE
     Dosage: DERMAL
     Dates: start: 20140416
  4. GENERIC PHENERGAN [Concomitant]
  5. BENADRYL [Concomitant]
  6. EPIPEN [Concomitant]
  7. PROACTIV + COMPLEXION PERFECTING HYDRATOR [Suspect]
     Indication: ACNE
     Dosage: DERMAL
     Dates: start: 20140416
  8. PROACTIV + MARK FADING PADS [Suspect]
     Indication: ACNE
     Dosage: DERMAL
     Dates: start: 20140416

REACTIONS (3)
  - Swelling face [None]
  - Pruritus [None]
  - Feeling hot [None]
